FAERS Safety Report 25142817 (Version 1)
Quarter: 2025Q1

REPORT INFORMATION
  Report Type: Spontaneous
  Country: GB (occurrence: GB)
  Receive Date: 20250331
  Receipt Date: 20250331
  Transmission Date: 20250408
  Serious: Yes (Other)
  Sender: TEVA
  Company Number: GB-MHRA-TPP23148506C2182674YC1742566002377

PATIENT
  Age: 84 Year
  Sex: Female
  Weight: 70 kg

DRUGS (6)
  1. PRAVASTATIN [Suspect]
     Active Substance: PRAVASTATIN
     Indication: Ill-defined disorder
     Dosage: 20MG TABLETS
     Route: 048
     Dates: start: 20240926, end: 20250123
  2. CANDESARTAN [Concomitant]
     Active Substance: CANDESARTAN
     Indication: Ill-defined disorder
     Route: 048
     Dates: start: 20240926
  3. ESTRADIOL [Concomitant]
     Active Substance: ESTRADIOL
     Indication: Ill-defined disorder
     Route: 067
     Dates: start: 20240517
  4. AMOXICILLIN [Concomitant]
     Active Substance: AMOXICILLIN
     Indication: Ill-defined disorder
     Route: 048
     Dates: start: 20250110, end: 20250117
  5. OMEPRAZOLE [Concomitant]
     Active Substance: OMEPRAZOLE
     Indication: Gastrooesophageal reflux disease
     Route: 048
     Dates: start: 20240926
  6. AMLODIPINE [Concomitant]
     Active Substance: AMLODIPINE BESYLATE
     Indication: Ill-defined disorder
     Route: 048
     Dates: start: 20240926

REACTIONS (1)
  - Pain in extremity [Recovering/Resolving]

NARRATIVE: CASE EVENT DATE: 20250321
